FAERS Safety Report 6645408-9 (Version None)
Quarter: 2010Q1

REPORT INFORMATION
  Report Type: 
  Country: None (occurrence: None)
  Receive Date: 20100322
  Receipt Date: 20100311
  Transmission Date: 20100710
  Serious: Yes (Congenital Anomaly)
  Sender: FDA-Public Use
  Company Number: FR-ABBOTT-10P-056-0632100-00

PATIENT
  Age: 1 Day
  Sex: Female

DRUGS (3)
  1. SODIUM VALPROATE [Suspect]
     Indication: DRUG EXPOSURE DURING PREGNANCY
     Route: 064
  2. TOPIRAMATE [Suspect]
     Indication: DRUG EXPOSURE DURING PREGNANCY
     Route: 064
  3. LAMOTRIGINE [Suspect]
     Indication: DRUG EXPOSURE DURING PREGNANCY
     Route: 064

REACTIONS (13)
  - ATRIAL SEPTAL DEFECT [None]
  - CARDIAC MURMUR [None]
  - CONGENITAL ANOMALY [None]
  - CONGENITAL HAND MALFORMATION [None]
  - CONGENITAL NOSE MALFORMATION [None]
  - CRANIOSYNOSTOSIS [None]
  - DYSMORPHISM [None]
  - HIGH ARCHED PALATE [None]
  - LIMB MALFORMATION [None]
  - PATENT DUCTUS ARTERIOSUS [None]
  - RENAL HYPOPLASIA [None]
  - SKULL MALFORMATION [None]
  - VENTRICULAR SEPTAL DEFECT [None]
